FAERS Safety Report 7582150-4 (Version None)
Quarter: 2011Q2

REPORT INFORMATION
  Report Type: 
  Country: None (occurrence: None)
  Receive Date: 20110630
  Receipt Date: 20110624
  Transmission Date: 20111010
  Serious: No
  Sender: FDA-Public Use
  Company Number: US-BIOGENIDEC-2011BI023373

PATIENT
  Age: 53 Year
  Sex: Female

DRUGS (1)
  1. TYSABRI [Suspect]
     Indication: MULTIPLE SCLEROSIS
     Route: 042
     Dates: start: 20070813

REACTIONS (5)
  - GENERAL PHYSICAL HEALTH DETERIORATION [None]
  - GASTROINTESTINAL DISORDER [None]
  - COORDINATION ABNORMAL [None]
  - ASTHENIA [None]
  - MOBILITY DECREASED [None]
